FAERS Safety Report 6115141-0 (Version None)
Quarter: 2009Q1

REPORT INFORMATION
  Report Type: 
  Country: None (occurrence: None)
  Receive Date: 20090313
  Receipt Date: 20090306
  Transmission Date: 20090719
  Serious: Yes (Other)
  Sender: FDA-Public Use
  Company Number: US-PFIZER INC-2009179213

PATIENT
  Sex: Male

DRUGS (3)
  1. IRINOTECAN HCL [Suspect]
     Indication: SMALL INTESTINE CARCINOMA
     Dosage: 180 MG/M2, CYCLIC EVERY 2-3 WEEKS
  2. FLUOROURACIL [Suspect]
     Indication: SMALL INTESTINE CARCINOMA
     Dosage: 2400 MG/M2, CYCLIC EVERY 2-3 WEEKS
  3. LEUCOVORIN CALCIUM [Suspect]
     Indication: SMALL INTESTINE CARCINOMA
     Dosage: 200 MG/M2, CYCLIC EVERY 2-3 WEEKS

REACTIONS (2)
  - ACUTE MONOCYTIC LEUKAEMIA [None]
  - NEOPLASM MALIGNANT [None]
